FAERS Safety Report 9579116 (Version 1)
Quarter: 2013Q4

REPORT INFORMATION
  Report Type: Spontaneous
  Country: US (occurrence: US)
  Receive Date: 20131001
  Receipt Date: 20131001
  Transmission Date: 20140711
  Serious: No
  Sender: FDA-Public Use
  Company Number: US-AMGEN-USASP2013016594

PATIENT
  Age: 57 Year
  Sex: Female
  Weight: 87.98 kg

DRUGS (3)
  1. ENBREL [Suspect]
     Indication: PSORIATIC ARTHROPATHY
     Dosage: 50 MG, 2 TIMES/WK (72-96 HOURS APART FOR 3 MONTH)
     Route: 058
  2. GABAPENTIN [Concomitant]
     Dosage: 400 MG, UNK
  3. HYDROCODONE / IBUPROFEN [Concomitant]
     Dosage: 7.5 (7.5-200) UNK, UNK

REACTIONS (1)
  - Fatigue [Unknown]
